FAERS Safety Report 7022620-0 (Version None)
Quarter: 2010Q3

REPORT INFORMATION
  Report Type: 
  Country: None (occurrence: None)
  Receive Date: 20100930
  Receipt Date: 20100920
  Transmission Date: 20110219
  Serious: Yes (Hospitalization)
  Sender: FDA-Public Use
  Company Number: IL-AMGEN-QUU441353

PATIENT
  Age: 63 Year
  Sex: Female

DRUGS (5)
  1. NEUPOGEN [Suspect]
     Indication: CHEMOTHERAPY
  2. CAPECITABINE [Suspect]
     Route: 048
  3. CETUXIMAB [Suspect]
     Route: 042
  4. OXALIPLATIN [Suspect]
     Route: 042
  5. IRINOTECAN HCL [Concomitant]
     Route: 042

REACTIONS (3)
  - FANCONI SYNDROME [None]
  - RENAL TUBULAR ACIDOSIS [None]
  - SEPSIS [None]
